FAERS Safety Report 18432998 (Version 2)
Quarter: 2022Q4

REPORT INFORMATION
  Report Type: Spontaneous
  Country: GB (occurrence: None)
  Receive Date: 20201027
  Receipt Date: 20221124
  Transmission Date: 20230113
  Serious: Yes (Hospitalization, Other)
  Sender: FDA-Public Use
  Company Number: 2020SF38120

PATIENT

DRUGS (10)
  1. OMEPRAZOLE [Suspect]
     Active Substance: OMEPRAZOLE
     Indication: Duodenal ulcer
     Dosage: UNKNOWN
     Route: 065
  2. DOCUSATE [Suspect]
     Active Substance: DOCUSATE
     Indication: Product used for unknown indication
     Dosage: DOCUSATE UNKNOWN
     Route: 065
  3. SACUBITRIL [Suspect]
     Active Substance: SACUBITRIL
     Indication: Product used for unknown indication
     Route: 065
  4. SACUBITRIL [Suspect]
     Active Substance: SACUBITRIL
     Indication: Product used for unknown indication
     Route: 065
  5. TAMSULOSIN [Suspect]
     Active Substance: TAMSULOSIN
     Indication: Product used for unknown indication
     Dosage: TAMSULOSIN UNKNOWN
     Route: 065
  6. ENTRESTO [Suspect]
     Active Substance: SACUBITRIL\VALSARTAN
     Indication: Product used for unknown indication
     Dosage: 100 MILLIGRAM, DAILY
     Route: 065
  7. ENTRESTO [Suspect]
     Active Substance: SACUBITRIL\VALSARTAN
     Indication: Product used for unknown indication
     Dosage: 50 MILLIGRAM, DAILY
     Route: 065
  8. ENTRESTO [Suspect]
     Active Substance: SACUBITRIL\VALSARTAN
     Indication: Product used for unknown indication
     Dosage: 50 MILLIGRAM, TWO TIMES A DAY
     Route: 065
  9. BISOPROLOL [Suspect]
     Active Substance: BISOPROLOL
     Indication: Product used for unknown indication
     Dosage: BISOPROLOL UNKNOWN
     Route: 065
  10. OXYCODONE [Suspect]
     Active Substance: OXYCODONE
     Indication: Product used for unknown indication
     Dosage: OXYCODONE UNKNOWN
     Route: 065

REACTIONS (2)
  - Hyperkalaemia [Unknown]
  - Acute kidney injury [Unknown]
